FAERS Safety Report 15035983 (Version 1)
Quarter: 2018Q2

REPORT INFORMATION
  Report Type: Spontaneous
  Country: US (occurrence: US)
  Receive Date: 20180620
  Receipt Date: 20180620
  Transmission Date: 20180711
  Serious: Yes (Other)
  Sender: FDA-Public Use
  Company Number: PHEH2018US023475

PATIENT
  Age: 72 Year
  Sex: Male
  Weight: 108.8 kg

DRUGS (3)
  1. GRALISE [Suspect]
     Active Substance: GABAPENTIN
     Indication: INTERVERTEBRAL DISC PROTRUSION
     Dosage: UNK (TITRATED TO 900 MG)
     Route: 048
     Dates: start: 20180512, end: 20180514
  2. VALSARTAN. [Suspect]
     Active Substance: VALSARTAN
     Dosage: UNK
     Route: 065
  3. GRALISE [Suspect]
     Active Substance: GABAPENTIN
     Indication: NERVE INJURY

REACTIONS (5)
  - Lip swelling [Recovered/Resolved]
  - Drug titration error [Unknown]
  - Pruritus [Not Recovered/Not Resolved]
  - Urticaria [Not Recovered/Not Resolved]
  - Product use in unapproved indication [Unknown]

NARRATIVE: CASE EVENT DATE: 20180512
